FAERS Safety Report 16356914 (Version 1)
Quarter: 2019Q2

REPORT INFORMATION
  Report Type: Spontaneous
  Country: FR (occurrence: FR)
  Receive Date: 20190527
  Receipt Date: 20190527
  Transmission Date: 20190711
  Serious: Yes (Other)
  Sender: FDA-Public Use
  Company Number: FR-ROCHE-2324873

PATIENT
  Age: 1 Month
  Sex: Female
  Weight: 7.68 kg

DRUGS (1)
  1. ROVALCYTE [Suspect]
     Active Substance: VALGANCICLOVIR HYDROCHLORIDE
     Indication: CONGENITAL CYTOMEGALOVIRUS INFECTION
     Route: 048
     Dates: start: 20181108, end: 20181115

REACTIONS (1)
  - Hepatocellular injury [Recovering/Resolving]

NARRATIVE: CASE EVENT DATE: 20181115
